FAERS Safety Report 6916707-8 (Version None)
Quarter: 2010Q3

REPORT INFORMATION
  Report Type: 
  Country: None (occurrence: None)
  Receive Date: 20100810
  Receipt Date: 20100729
  Transmission Date: 20110219
  Serious: Yes (Other)
  Sender: FDA-Public Use
  Company Number: CH-WYE-H16678610

PATIENT
  Sex: Male

DRUGS (6)
  1. PANTOZOL [Suspect]
     Dosage: UNKNOWN
     Route: 064
  2. PROCORALAN [Suspect]
     Dosage: UNKNOWN
     Route: 064
     Dates: end: 20090101
  3. CLEXANE [Suspect]
     Route: 064
     Dates: end: 20100403
  4. LIQUAEMIN INJ [Suspect]
     Route: 064
     Dates: start: 20100403, end: 20100416
  5. ACETYLSALICYLIC ACID SRT [Suspect]
     Dosage: UNKNOWN
     Route: 064
     Dates: start: 20091117, end: 20100403
  6. METOPROLOL SUCCINATE [Suspect]
     Route: 064
     Dates: start: 20090101

REACTIONS (2)
  - DRUG EXPOSURE DURING PREGNANCY [None]
  - FOETAL GROWTH RESTRICTION [None]
